FAERS Safety Report 19918470 (Version 2)
Quarter: 2022Q1

REPORT INFORMATION
  Report Type: Report from Study
  Country: EG (occurrence: EG)
  Receive Date: 20211005
  Receipt Date: 20220107
  Transmission Date: 20220423
  Serious: Yes (Other)
  Sender: FDA-Public Use
  Company Number: EG-NOVARTISPH-NVSC2021EG219776

PATIENT
  Age: 10 Year
  Sex: Male

DRUGS (2)
  1. OMNITROPE [Suspect]
     Active Substance: SOMATROPIN
     Indication: Growth hormone deficiency
     Dosage: 0.8 MG, QD
     Route: 058
     Dates: start: 20190213
  2. FERROGLOBIN [Concomitant]
     Indication: Supplementation therapy
     Dosage: 1 DF, QD
     Route: 065

REACTIONS (7)
  - Epistaxis [Recovered/Resolved]
  - Product dose omission issue [Recovered/Resolved]
  - Visual impairment [Not Recovered/Not Resolved]
  - Inappropriate schedule of product discontinuation [Not Recovered/Not Resolved]
  - Product availability issue [Not Recovered/Not Resolved]
  - Device delivery system issue [Recovered/Resolved]
  - Incorrect dose administered [Recovered/Resolved]

NARRATIVE: CASE EVENT DATE: 20210101
